FAERS Safety Report 21586100 (Version 4)
Quarter: 2025Q3

REPORT INFORMATION
  Report Type: Spontaneous
  Country: EU (occurrence: EU)
  Receive Date: 20221112
  Receipt Date: 20250821
  Transmission Date: 20251020
  Serious: Yes (Other)
  Sender: MSN LABORATORIES PRIVATE LIMITED
  Company Number: EU-MSNLABS-2022MSNLIT01358

PATIENT

DRUGS (8)
  1. ROSUVASTATIN [Suspect]
     Active Substance: ROSUVASTATIN
     Indication: Dyslipidaemia
     Route: 065
     Dates: start: 202005, end: 202108
  2. ATORVASTATIN [Suspect]
     Active Substance: ATORVASTATIN
     Indication: Dyslipidaemia
     Dosage: 20 MG, QID (EVERY 6 HOUR)
     Route: 065
     Dates: start: 202108
  3. ATORVASTATIN [Suspect]
     Active Substance: ATORVASTATIN
     Indication: Coronary artery disease
  4. EZETIMIBE [Suspect]
     Active Substance: EZETIMIBE
     Indication: Dyslipidaemia
     Dosage: 10 MG, ID
     Route: 065
     Dates: start: 202005
  5. EZETIMIBE [Suspect]
     Active Substance: EZETIMIBE
     Indication: Coronary artery disease
     Dosage: 10 MG, QID (EVERY 6 HOUR)
     Route: 065
     Dates: start: 202108
  6. PENTOXIFYLLINE [Concomitant]
     Active Substance: PENTOXIFYLLINE
     Indication: Product used for unknown indication
     Route: 065
     Dates: start: 202202
  7. DEFLAZACORT [Concomitant]
     Active Substance: DEFLAZACORT
     Indication: Product used for unknown indication
     Route: 065
     Dates: start: 202202
  8. NAPROXEN [Concomitant]
     Active Substance: NAPROXEN
     Indication: Product used for unknown indication
     Route: 065
     Dates: start: 202202

REACTIONS (16)
  - Dermatomyositis [Unknown]
  - Skin lesion [Recovering/Resolving]
  - Cyanosis [Recovering/Resolving]
  - Polyarthritis [Recovering/Resolving]
  - Heliotrope rash [Recovering/Resolving]
  - Inflammation [Recovering/Resolving]
  - Synovitis [Recovering/Resolving]
  - Acrosclerosis [Recovering/Resolving]
  - Paronychia [Recovering/Resolving]
  - Lymphopenia [Recovering/Resolving]
  - Haemorrhage [Recovering/Resolving]
  - Thrombocytopenia [Recovering/Resolving]
  - Myositis [Recovering/Resolving]
  - Arthralgia [Recovering/Resolving]
  - Myalgia [Recovering/Resolving]
  - Asthenia [Recovering/Resolving]

NARRATIVE: CASE EVENT DATE: 20210201
